FAERS Safety Report 7307853-8 (Version None)
Quarter: 2011Q1

REPORT INFORMATION
  Report Type: 
  Country: None (occurrence: None)
  Receive Date: 20110223
  Receipt Date: 20101209
  Transmission Date: 20110831
  Serious: No
  Sender: FDA-Public Use
  Company Number: US-BRISTOL-MYERS SQUIBB COMPANY-15432776

PATIENT
  Sex: Female

DRUGS (1)
  1. CEFZIL [Suspect]

REACTIONS (1)
  - ADVERSE DRUG REACTION [None]
